FAERS Safety Report 11739585 (Version 1)
Quarter: 2015Q4

REPORT INFORMATION
  Report Type: Spontaneous
  Country: DE (occurrence: DE)
  Receive Date: 20151113
  Receipt Date: 20151113
  Transmission Date: 20160304
  Serious: Yes (Hospitalization, Other)
  Sender: FDA-Public Use
  Company Number: DE-BAXTER-2015BAX060293

PATIENT
  Age: 62 Year
  Sex: Male

DRUGS (11)
  1. NEXIUM 20 [Concomitant]
     Indication: PRODUCT USED FOR UNKNOWN INDICATION
     Route: 048
  2. AMIODARONE [Concomitant]
     Active Substance: AMIODARONE
     Indication: PRODUCT USED FOR UNKNOWN INDICATION
     Route: 065
     Dates: start: 20151030
  3. FLUTIDE [Concomitant]
     Active Substance: FLUTICASONE PROPIONATE
     Indication: PRODUCT USED FOR UNKNOWN INDICATION
     Route: 065
  4. SUPRANE [Suspect]
     Active Substance: DESFLURANE
     Indication: ANAESTHESIA PROCEDURE
     Route: 055
     Dates: start: 20151023
  5. SEVORANE [Suspect]
     Active Substance: SEVOFLURANE
     Indication: SEDATION
     Dosage: 0.8-1.2 VOL% VIA ANACONDA
     Route: 065
     Dates: start: 20151028, end: 20151103
  6. SUFENTA [Concomitant]
     Active Substance: SUFENTANIL CITRATE
     Indication: KNEE ARTHROPLASTY
     Route: 065
  7. DYNASTAT [Concomitant]
     Active Substance: PARECOXIB SODIUM
     Indication: KNEE ARTHROPLASTY
     Route: 065
  8. TAZOBAC [Concomitant]
     Active Substance: PIPERACILLIN SODIUM\TAZOBACTAM SODIUM
     Indication: PRODUCT USED FOR UNKNOWN INDICATION
     Route: 065
     Dates: start: 20151104
  9. TRACRIUM [Concomitant]
     Active Substance: ATRACURIUM BESYLATE
     Indication: KNEE ARTHROPLASTY
     Route: 065
  10. CEFUROXIM [Concomitant]
     Active Substance: CEFUROXIME
     Indication: KNEE ARTHROPLASTY
     Route: 065
  11. AMIODARONE [Concomitant]
     Active Substance: AMIODARONE
     Route: 065

REACTIONS (5)
  - Acute kidney injury [Recovered/Resolved]
  - Cardiovascular insufficiency [Unknown]
  - Polyuria [Unknown]
  - Pneumonia influenzal [Unknown]
  - Respiratory failure [Unknown]

NARRATIVE: CASE EVENT DATE: 20151026
